FAERS Safety Report 4454293-5 (Version None)
Quarter: 2004Q3

REPORT INFORMATION
  Report Type: 
  Country: None (occurrence: None)
  Receive Date: 20040826
  Receipt Date: 20040607
  Transmission Date: 20050211
  Serious: No
  Sender: FDA-Public Use
  Company Number: WAES 0406USA00605

PATIENT
  Sex: Female

DRUGS (3)
  1. ZETIA [Suspect]
     Dosage: 10 MG/DAILY/PO
     Route: 048
     Dates: start: 20040101
  2. FOSAMAX [Concomitant]
  3. SYNTHROID [Concomitant]

REACTIONS (1)
  - CONTUSION [None]
